FAERS Safety Report 8607588 (Version 3)
Quarter: 2013Q2

REPORT INFORMATION
  Report Type: Report from Study
  Country: MX (occurrence: MX)
  Receive Date: 20120611
  Receipt Date: 20130506
  Transmission Date: 20140414
  Serious: Yes (Death)
  Sender: FDA-Public Use
  Company Number: PHHY2012MX049450

PATIENT
  Sex: Male

DRUGS (7)
  1. EXELON PATCH [Suspect]
     Indication: AMNESIA
     Dosage: 9.5MG\24 HRS
     Route: 062
     Dates: start: 20120328
  2. EXELON PATCH [Suspect]
     Dosage: 9.5MG\24 HRS HALF PATCH DAILY
     Route: 062
  3. METOPROLOL [Concomitant]
     Indication: HYPERTENSION
     Dosage: 1 DF, BID/TWICE DAILY
  4. ATACAND [Concomitant]
     Indication: HYPERTENSION
     Dosage: 1 DF, QD/ONCE DAILY
     Dates: start: 20120328
  5. CELEBREX [Concomitant]
     Indication: MEMORY IMPAIRMENT
     Dosage: 1 DF, BID/TWICE A DAY
     Dates: start: 20120328
  6. KETOROLAC [Concomitant]
     Indication: PAIN
     Dosage: 3 DF, UNK
     Dates: start: 20120328
  7. METFORMIN [Concomitant]
     Indication: DIABETES MELLITUS
     Dosage: 1 DF, UNK
     Dates: start: 2008

REACTIONS (5)
  - Respiratory failure [Fatal]
  - Myocardial infarction [Fatal]
  - Renal injury [Fatal]
  - Urinary tract infection [Fatal]
  - Wrong technique in drug usage process [Unknown]
